FAERS Safety Report 9541922 (Version 2)
Quarter: 2013Q3

REPORT INFORMATION
  Report Type: Spontaneous
  Country: FR (occurrence: FR)
  Receive Date: 20130923
  Receipt Date: 20130923
  Transmission Date: 20140515
  Serious: Yes (Hospitalization, Other)
  Sender: FDA-Public Use
  Company Number: PHHY2013FR104375

PATIENT
  Age: 15 Year
  Sex: Female

DRUGS (19)
  1. TEGRETOL LP [Suspect]
     Dosage: 200 UG, QD
     Route: 048
     Dates: start: 20130717, end: 20130717
  2. TEGRETOL LP [Suspect]
     Dosage: 200 UG, TID
     Route: 048
     Dates: start: 20130718, end: 20130718
  3. TEGRETOL LP [Suspect]
     Dosage: 400 UG, BID
     Route: 048
     Dates: start: 20130719, end: 20130723
  4. TEGRETOL LP [Suspect]
     Dosage: 200 MG, BID
     Route: 048
     Dates: start: 20130724, end: 20130729
  5. TEGRETOL LP [Suspect]
     Dosage: 500 MG, QD
     Route: 048
     Dates: start: 20130730, end: 20130731
  6. TEGRETOL [Suspect]
     Indication: BRIEF PSYCHOTIC DISORDER WITH MARKED STRESSORS
     Dosage: 200 MG, TID
     Route: 048
     Dates: start: 20130201, end: 20130202
  7. TEGRETOL [Suspect]
     Dosage: 200 MG, TID
     Route: 048
     Dates: start: 20130801, end: 20130802
  8. RISPERDAL [Suspect]
     Indication: BRIEF PSYCHOTIC DISORDER WITH MARKED STRESSORS
     Dosage: 0.5 MG, QD
     Route: 048
     Dates: start: 20130713, end: 20130724
  9. RISPERDAL [Suspect]
     Dosage: 1 MG, QD
     Dates: start: 20130715, end: 20130716
  10. RISPERDAL [Suspect]
     Dosage: 1.5 MG, QD
     Route: 048
     Dates: start: 20130717, end: 20130824
  11. RISPERDAL [Suspect]
     Dosage: 2 MG, QD
     Route: 048
     Dates: start: 20130725, end: 20130730
  12. RISPERDAL [Suspect]
     Dosage: 2.5 MG, QD
     Route: 048
     Dates: start: 20130731, end: 20130802
  13. LOXAPAC [Suspect]
     Indication: BRIEF PSYCHOTIC DISORDER WITH MARKED STRESSORS
     Dosage: 75 MG, QD
     Route: 048
     Dates: start: 20130717, end: 20130718
  14. LOXAPAC [Suspect]
     Dosage: 45 MG, QD
     Route: 048
     Dates: start: 20130719, end: 20130721
  15. LOXAPAC [Suspect]
     Dosage: 30 MG, QD
     Route: 048
     Dates: start: 20130722, end: 20130723
  16. LOXAPAC [Suspect]
     Dosage: 20 MG, QD
     Route: 048
     Dates: start: 20130724, end: 20130725
  17. LOXAPAC [Suspect]
     Dosage: 5 MG, QD
     Route: 048
     Dates: start: 20130726, end: 20130731
  18. LOXAPAC [Suspect]
     Dosage: 65 MG, QD
     Route: 048
     Dates: start: 20130801, end: 20130802
  19. LOXAPAC [Suspect]
     Dosage: 25MG AT 02:45AM AND 50MG AT 4:30AM
     Dates: start: 20130803

REACTIONS (2)
  - Catatonia [Recovered/Resolved]
  - Agitation [Recovered/Resolved]
